FAERS Safety Report 6918806-3 (Version None)
Quarter: 2010Q3

REPORT INFORMATION
  Report Type: 
  Country: None (occurrence: None)
  Receive Date: 20100811
  Receipt Date: 20100730
  Transmission Date: 20110219
  Serious: Yes (Life-Threatening, Hospitalization, Other)
  Sender: FDA-Public Use
  Company Number: JP-BRISTOL-MYERS SQUIBB COMPANY-15006711

PATIENT
  Age: 74 Year
  Sex: Male
  Weight: 49 kg

DRUGS (5)
  1. MAXIPIME [Suspect]
     Indication: PROPHYLAXIS
     Dosage: 1GM/DAY:IV:02FEB2010:1 DAY 1GX2/D FROM 28JAN10 TO 31JAN10 (4D)
     Route: 041
     Dates: start: 20100128
  2. MIRACLID [Concomitant]
     Route: 041
     Dates: start: 20100116, end: 20100203
  3. PANTHENOL [Concomitant]
     Route: 041
     Dates: start: 20100116, end: 20100204
  4. OMEPRAL [Concomitant]
     Route: 042
     Dates: start: 20100116, end: 20100203
  5. AMINO ACID+CARBOHYDRATE+ELECTROLYTE+VITAMINS [Concomitant]
     Route: 041
     Dates: start: 20100119, end: 20100202

REACTIONS (3)
  - ANAEMIA [None]
  - HAEMORRHAGE [None]
  - THROMBOCYTOPENIA [None]
